FAERS Safety Report 24645729 (Version 1)
Quarter: 2024Q4

REPORT INFORMATION
  Report Type: Spontaneous
  Country: US (occurrence: US)
  Receive Date: 20241121
  Receipt Date: 20241121
  Transmission Date: 20250115
  Serious: Yes (Life-Threatening, Hospitalization)
  Sender: HIKMA
  Company Number: None

PATIENT
  Age: 42 Year
  Sex: Male

DRUGS (1)
  1. PREDNISONE [Suspect]
     Active Substance: PREDNISONE
     Indication: Sarcoidosis
     Dosage: 80 MILLIGRAM, QD
     Route: 048

REACTIONS (5)
  - Sepsis [Unknown]
  - Necrotising fasciitis fungal [Unknown]
  - Disseminated cryptococcosis [Unknown]
  - Fungal myositis [Unknown]
  - Enterobacter infection [Unknown]
